FAERS Safety Report 10229368 (Version 1)
Quarter: 2014Q2

REPORT INFORMATION
  Report Type: Report from Study
  Country: US (occurrence: US)
  Receive Date: 20140611
  Receipt Date: 20140611
  Transmission Date: 20141212
  Serious: Yes (Other)
  Sender: FDA-Public Use
  Company Number: US-ROCHE-1362767

PATIENT
  Sex: Female

DRUGS (11)
  1. LUCENTIS [Suspect]
     Indication: DIABETIC EYE DISEASE
     Route: 050
  2. LUCENTIS [Suspect]
     Indication: DIABETIC RETINOPATHY
  3. LUCENTIS [Suspect]
     Indication: TYPE 1 DIABETES MELLITUS
  4. LUCENTIS [Suspect]
     Indication: CYSTOID MACULAR OEDEMA
  5. AVASTIN [Suspect]
     Indication: DIABETIC EYE DISEASE
     Route: 065
  6. AVASTIN [Suspect]
     Indication: DIABETIC RETINOPATHY
  7. METFORMIN [Concomitant]
     Route: 065
  8. TIMOLOL [Concomitant]
     Dosage: QHS
     Route: 065
  9. LUMIGAN [Concomitant]
     Dosage: QHS
     Route: 065
  10. COMBIGAN [Concomitant]
     Dosage: OU MIDNIGHTS
     Route: 065
  11. VISINE [Concomitant]
     Dosage: OD PRN
     Route: 065

REACTIONS (11)
  - Cystoid macular oedema [Unknown]
  - Eye pruritus [Unknown]
  - Retinal haemorrhage [Unknown]
  - Retinal exudates [Unknown]
  - Dry eye [Unknown]
  - Aneurysm [Unknown]
  - Headache [Unknown]
  - Vision blurred [Unknown]
  - Off label use [Unknown]
  - Hypertension [Unknown]
  - Eye pain [Unknown]
